FAERS Safety Report 4344949-7 (Version None)
Quarter: 2004Q2

REPORT INFORMATION
  Report Type: 
  Country: None (occurrence: None)
  Receive Date: 20040420
  Receipt Date: 20040408
  Transmission Date: 20050107
  Serious: Yes (Hospitalization)
  Sender: FDA-Public Use
  Company Number: US-JNJFOC-20040102044

PATIENT
  Age: 58 Year
  Sex: Female
  Weight: 38.5557 kg

DRUGS (5)
  1. DURAGESIC [Suspect]
     Indication: PAIN
     Dosage: 50 UG/HR, 1 IN72 HOUR, TRANSDERMAL
     Route: 062
     Dates: start: 20010301, end: 20010301
  2. ZANTAC [Concomitant]
  3. ANTACIDS (ANTACIDS) [Concomitant]
  4. LIBRIUM [Concomitant]
  5. ASPIRIN [Concomitant]

REACTIONS (11)
  - DIARRHOEA [None]
  - DRUG EFFECT DECREASED [None]
  - DYSPHAGIA [None]
  - GASTRIC DISORDER [None]
  - INADEQUATE ANALGESIA [None]
  - INSOMNIA [None]
  - MUSCLE TWITCHING [None]
  - NAUSEA [None]
  - NERVOUSNESS [None]
  - PANCREATITIS [None]
  - RESTLESSNESS [None]
